FAERS Safety Report 8953518 (Version 2)
Quarter: 2012Q4

REPORT INFORMATION
  Report Type: 
  Country: US (occurrence: US)
  Receive Date: 20121206
  Receipt Date: 20121217
  Transmission Date: 20130627
  Serious: Yes (Hospitalization, Other)
  Sender: FDA-Public Use
  Company Number: US-TEVA-373618USA

PATIENT
  Age: 63 None
  Sex: Female

DRUGS (1)
  1. COPAXONE [Suspect]
     Indication: MULTIPLE SCLEROSIS
     Dates: start: 20101203

REACTIONS (6)
  - Chest discomfort [Recovering/Resolving]
  - Heart rate increased [Recovering/Resolving]
  - Feeling cold [Recovering/Resolving]
  - Cold sweat [Recovering/Resolving]
  - Musculoskeletal pain [Recovering/Resolving]
  - Arterial occlusive disease [Unknown]
